FAERS Safety Report 4449073-0 (Version None)
Quarter: 2004Q3

REPORT INFORMATION
  Report Type: 
  Country: None (occurrence: None)
  Receive Date: 20040910
  Receipt Date: 20040722
  Transmission Date: 20050211
  Serious: No
  Sender: FDA-Public Use
  Company Number: 2004AP03862

PATIENT

DRUGS (3)
  1. XYLOCAINE [Suspect]
     Dosage: 2 MG/KG ONCE IV
     Route: 042
  2. XYLOCAINE [Suspect]
     Dosage: 4 MG/KG/HR IVD
     Route: 041
  3. CALCIUM GLUCONATE [Suspect]

REACTIONS (4)
  - BRADYCARDIA NEONATAL [None]
  - DRUG INTERACTION [None]
  - NEONATAL DISORDER [None]
  - STATUS EPILEPTICUS [None]
